FAERS Safety Report 4803980-5 (Version None)
Quarter: 2005Q3

REPORT INFORMATION
  Report Type: 
  Country: None (occurrence: None)
  Receive Date: 20050920
  Receipt Date: 20050706
  Transmission Date: 20060218
  Serious: No
  Sender: FDA-Public Use
  Company Number: US-YAMANOUCHI-YPA20050360

PATIENT
  Age: 57 Year
  Sex: Female
  Weight: 87.0906 kg

DRUGS (21)
  1. VESICARE [Suspect]
     Indication: HYPERTONIC BLADDER
     Dosage: 10 MG QD PO
     Route: 048
     Dates: start: 20050513, end: 20050608
  2. PROZAC [Concomitant]
  3. SONATA [Concomitant]
  4. TOPAMAX [Concomitant]
  5. PREVACID [Concomitant]
  6. CLONAZEPAM [Concomitant]
  7. REQUIP [Concomitant]
  8. ADDERALL 10 [Concomitant]
  9. NYSTOP [Concomitant]
  10. NYSTATIN [Concomitant]
  11. NASONEX [Concomitant]
  12. HYDROCODONE [Concomitant]
  13. TRAZODONE HCL [Concomitant]
  14. NEURONTIN [Concomitant]
  15. NAPROXEN [Concomitant]
  16. CHROMIUM PICOLINATE [Concomitant]
  17. M.V.I. [Concomitant]
  18. VITAMIN B COMPLEX CAP [Concomitant]
  19. ASCORBIC ACID [Concomitant]
  20. FISH OIL [Concomitant]
  21. VITAMIN K [Concomitant]

REACTIONS (3)
  - ABDOMINAL PAIN UPPER [None]
  - DRUG INEFFECTIVE [None]
  - HYPERHIDROSIS [None]
